FAERS Safety Report 24449234 (Version 1)
Quarter: 2024Q4

REPORT INFORMATION
  Report Type: Spontaneous
  Country: FR (occurrence: FR)
  Receive Date: 20241017
  Receipt Date: 20241017
  Transmission Date: 20250115
  Serious: Yes (Other)
  Sender: AMGEN
  Company Number: None

PATIENT
  Age: 51 Year
  Sex: Female

DRUGS (1)
  1. PROLIA [Suspect]
     Active Substance: DENOSUMAB
     Indication: Osteoporotic fracture
     Dosage: 60 MILLIGRAM
     Route: 058
     Dates: start: 20240310, end: 20240310

REACTIONS (1)
  - Scar inflammation [Not Recovered/Not Resolved]

NARRATIVE: CASE EVENT DATE: 20240312
